FAERS Safety Report 11258364 (Version 1)
Quarter: 2015Q3

REPORT INFORMATION
  Report Type: Spontaneous
  Country: TR (occurrence: None)
  Receive Date: 20150708
  Receipt Date: 20150708
  Transmission Date: 20151125
  Serious: Yes (Other)
  Sender: FDA-Public Use
  Company Number: COR_00317_2015

PATIENT
  Age: 30 Year
  Sex: Male

DRUGS (3)
  1. CISPLATIN (CISPLATIN) [Suspect]
     Active Substance: CISPLATIN
     Indication: SEMINOMA
     Dosage: DF
  2. ETOPOSIDE (ETOPOSIDE) [Suspect]
     Active Substance: ETOPOSIDE
     Indication: SEMINOMA
     Dosage: DF
  3. BLEOMYCIN [Suspect]
     Active Substance: BLEOMYCIN SULFATE
     Indication: SEMINOMA
     Dosage: DF

REACTIONS (3)
  - Peripheral arterial occlusive disease [None]
  - Peripheral artery thrombosis [None]
  - Renal ischaemia [None]
